FAERS Safety Report 8614765-6 (Version None)
Quarter: 2012Q3

REPORT INFORMATION
  Report Type: 
  Country: None (occurrence: None)
  Receive Date: 20120823
  Receipt Date: 20120817
  Transmission Date: 20120928
  Serious: Yes (Hospitalization, Disabling, Other)
  Sender: FDA-Public Use
  Company Number: PT-PFIZER INC-2012201854

PATIENT
  Age: 66 Year
  Sex: Male
  Weight: 71 kg

DRUGS (6)
  1. FUROSEMIDE [Concomitant]
     Indication: HYPERTENSION
     Dosage: 40 MG, 1X/DAY
     Route: 048
  2. SERTRALINE [Concomitant]
     Indication: DEPRESSION
     Dosage: 50 MG, 1X/DAY
     Route: 048
  3. RISPERIDONE [Concomitant]
     Indication: DEPRESSION
     Dosage: 1 MG, 1X/DAY
     Route: 048
  4. LEVOTHYROXINE SODIUM [Concomitant]
     Indication: SECONDARY HYPOTHYROIDISM
     Dosage: 0.1 MG, 1X/DAY
     Route: 048
     Dates: start: 20090401
  5. AMLODIPINE [Concomitant]
     Indication: HYPERTENSION
     Dosage: 10 MG, 1X/DAY
     Route: 048
     Dates: start: 20080101
  6. SUTENT [Suspect]
     Indication: METASTATIC RENAL CELL CARCINOMA
     Dosage: 25 MG 1X/DAY (D1-D28 IN CYCLES OF 42DAYS)
     Route: 048
     Dates: start: 20071206, end: 20120622

REACTIONS (4)
  - HYPERTENSION [None]
  - ELECTROCARDIOGRAM ST SEGMENT ELEVATION [None]
  - ACUTE CORONARY SYNDROME [None]
  - ARTERIAL THROMBOSIS [None]
